FAERS Safety Report 19139157 (Version 10)
Quarter: 2023Q1

REPORT INFORMATION
  Report Type: Report from Study
  Country: FR (occurrence: None)
  Receive Date: 20210415
  Receipt Date: 20230309
  Transmission Date: 20230417
  Serious: Yes (Hospitalization)
  Sender: FDA-Public Use
  Company Number: FR-ROCHE-2808143

PATIENT
  Age: 64 Year
  Sex: Male
  Weight: 73.5 kg

DRUGS (17)
  1. OCRELIZUMAB [Suspect]
     Active Substance: OCRELIZUMAB
     Indication: Progressive multiple sclerosis
     Dosage: ON 13/JAN/2021, AT 11:15 HE RECEIVED MOST RECENT DOSE OF OCRELIZUMAB (300 MG) PRIOR TO SERIOUS ADVER
     Route: 042
     Dates: start: 20201230
  2. DALFAMPRIDINE [Concomitant]
     Active Substance: DALFAMPRIDINE
     Route: 048
     Dates: start: 201710
  3. BACLOFEN [Concomitant]
     Active Substance: BACLOFEN
     Route: 048
     Dates: start: 202010
  4. HERBALS\SAW PALMETTO [Concomitant]
     Active Substance: HERBALS\SAW PALMETTO
     Route: 048
  5. MOVICOL [Concomitant]
     Active Substance: POLYETHYLENE GLYCOL 3350\POTASSIUM CHLORIDE\SODIUM BICARBONATE\SODIUM CHLORIDE
     Dosage: 1 SACHET
     Route: 048
  6. METHYLPREDNISOLONE [Concomitant]
     Active Substance: METHYLPREDNISOLONE
     Indication: Premedication
     Dosage: BASELINE WEEK 0 (1)
     Route: 042
     Dates: start: 20201230, end: 20201230
  7. METHYLPREDNISOLONE [Concomitant]
     Active Substance: METHYLPREDNISOLONE
     Dosage: VISIT 3 WEEK 2 (1)
     Route: 042
     Dates: start: 20210113, end: 20210113
  8. METHYLPREDNISOLONE [Concomitant]
     Active Substance: METHYLPREDNISOLONE
     Dosage: START TIME 11:00, END TIME 11:15
     Route: 042
     Dates: start: 20210628, end: 20210628
  9. POLARAMINE [Concomitant]
     Active Substance: DEXCHLORPHENIRAMINE MALEATE
     Indication: Premedication
     Dosage: BASELINE WEEK 0 (1)
     Route: 042
     Dates: start: 20201230, end: 20201230
  10. POLARAMINE [Concomitant]
     Active Substance: DEXCHLORPHENIRAMINE MALEATE
     Dosage: VISIT 3 WEEK 2 (1)
     Route: 042
     Dates: start: 20210113, end: 20210113
  11. POLARAMINE [Concomitant]
     Active Substance: DEXCHLORPHENIRAMINE MALEATE
     Route: 042
     Dates: start: 20210628, end: 20210628
  12. PERFALGAN [Concomitant]
     Active Substance: ACETAMINOPHEN
     Indication: Premedication
     Dosage: BASELINE WEEK 0
     Route: 042
     Dates: start: 20201230, end: 20201230
  13. PERFALGAN [Concomitant]
     Active Substance: ACETAMINOPHEN
     Dosage: VISIT 3 WEEK 2 (1)
     Route: 042
     Dates: start: 20210113, end: 20210113
  14. PERFALGAN [Concomitant]
     Active Substance: ACETAMINOPHEN
     Route: 042
     Dates: start: 20210628, end: 20210628
  15. PFIZER-BIONTECH COVID-19 VACCINE [Concomitant]
     Active Substance: TOZINAMERAN
     Indication: Prophylaxis
     Dosage: 1 OTHER ?1ST DOSE
     Route: 030
     Dates: start: 20210423, end: 20210423
  16. PFIZER-BIONTECH COVID-19 VACCINE [Concomitant]
     Active Substance: TOZINAMERAN
     Dosage: 1 OTHER ?2ND DOSE
     Route: 030
     Dates: start: 20210527, end: 20210527
  17. ARIXTRA [Concomitant]
     Active Substance: FONDAPARINUX SODIUM
     Indication: Prophylaxis
     Route: 058
     Dates: start: 20210409, end: 20210430

REACTIONS (1)
  - Sepsis [Recovered/Resolved]

NARRATIVE: CASE EVENT DATE: 20210329
